FAERS Safety Report 4392773-1 (Version None)
Quarter: 2004Q3

REPORT INFORMATION
  Report Type: 
  Country: None (occurrence: None)
  Receive Date: 20040702
  Receipt Date: 20040316
  Transmission Date: 20050211
  Serious: Yes (Other)
  Sender: FDA-Public Use
  Company Number: 2004UW05009

PATIENT
  Age: 75 Year
  Sex: Female
  Weight: 81.6475 kg

DRUGS (7)
  1. CRESTOR [Suspect]
     Indication: HYPERCHOLESTEROLAEMIA
     Dosage: 10 MG QD PO
     Route: 048
     Dates: start: 20040306
  2. METFORMIN HCL [Concomitant]
  3. GLUCOTROL [Concomitant]
  4. LASIX [Concomitant]
  5. ANTIVERT [Concomitant]
  6. POTASSIUM [Concomitant]
  7. CELEBREX [Concomitant]

REACTIONS (1)
  - JOINT SWELLING [None]
